FAERS Safety Report 10621615 (Version 1)
Quarter: 2014Q4

REPORT INFORMATION
  Report Type: Other
  Country: CA (occurrence: CA)
  Receive Date: 20141203
  Receipt Date: 20141203
  Transmission Date: 20150529
  Serious: Yes (Other)
  Sender: FDA-Public Use
  Company Number: CA-TARO PHARMACEUTICALS U.S.A., INC-2014SUN02707

PATIENT
  Sex: Male
  Weight: 62 kg

DRUGS (7)
  1. ALENDRONATE [Concomitant]
     Active Substance: ALENDRONATE SODIUM
  2. SENOKOT [Concomitant]
     Active Substance: SENNOSIDES
  3. CALTRATE WITH VITAMIN D [Concomitant]
     Active Substance: CALCIUM CARBONATE\VITAMIN D
  4. BETAHISTINE [Concomitant]
     Active Substance: BETAHISTINE
  5. COLACE [Concomitant]
     Active Substance: DOCUSATE SODIUM
  6. MOMETASONE FUROATE CREAM USP, 0.1% [Suspect]
     Active Substance: MOMETASONE FUROATE
     Indication: PRODUCT USED FOR UNKNOWN INDICATION
     Dosage: UNK
     Route: 065
  7. ENTERIC COATED ASA TABLET (DELAYEDRELEASE) [Concomitant]

REACTIONS (4)
  - Erythema [Recovered/Resolved]
  - Blister [Recovered/Resolved]
  - Skin lesion [Recovered/Resolved]
  - Dermatitis [Recovered/Resolved]
